FAERS Safety Report 11993064 (Version 8)
Quarter: 2022Q1

REPORT INFORMATION
  Report Type: Spontaneous
  Country: US (occurrence: None)
  Receive Date: 20160203
  Receipt Date: 20220205
  Transmission Date: 20220423
  Serious: Yes (Other)
  Sender: FDA-Public Use
  Company Number: US-ROCHE-1700620

PATIENT
  Age: 50 Year
  Sex: Female

DRUGS (7)
  1. ACTEMRA [Suspect]
     Active Substance: TOCILIZUMAB
     Indication: Arthritis
     Route: 058
     Dates: start: 20151022
  2. ACTEMRA [Suspect]
     Active Substance: TOCILIZUMAB
     Indication: Lyme disease
     Route: 058
     Dates: start: 20141205
  3. ACTEMRA [Suspect]
     Active Substance: TOCILIZUMAB
     Indication: Polyarthritis
     Route: 058
     Dates: start: 20150113
  4. ACTEMRA [Suspect]
     Active Substance: TOCILIZUMAB
     Dosage: PFS 162MG/0.9M
     Route: 058
     Dates: start: 201412
  5. BUSPAR [Concomitant]
     Active Substance: BUSPIRONE HYDROCHLORIDE
     Indication: Anxiety
  6. ADVIL [Concomitant]
     Active Substance: IBUPROFEN
     Indication: Product used for unknown indication
     Dosage: 9 ADVIL A DAY.
  7. CLONAZEPAM [Concomitant]
     Active Substance: CLONAZEPAM
     Indication: Product used for unknown indication

REACTIONS (19)
  - Natural killer cell count decreased [Unknown]
  - Eosinophil count increased [Unknown]
  - White blood cell count increased [Unknown]
  - Mean cell volume increased [Unknown]
  - Blood cholesterol increased [Unknown]
  - Flushing [Not Recovered/Not Resolved]
  - Hyperhidrosis [Not Recovered/Not Resolved]
  - Upper respiratory tract infection [Recovering/Resolving]
  - Arthralgia [Not Recovered/Not Resolved]
  - Immunosuppression [Unknown]
  - Weight increased [Not Recovered/Not Resolved]
  - Diarrhoea [Unknown]
  - Pain in extremity [Unknown]
  - Therapeutic product effect decreased [Unknown]
  - Diarrhoea [Unknown]
  - Off label use [Unknown]
  - Joint swelling [Unknown]
  - Pain [Unknown]
  - Malaise [Unknown]

NARRATIVE: CASE EVENT DATE: 20151001
